FAERS Safety Report 4296774-3 (Version None)
Quarter: 2004Q1

REPORT INFORMATION
  Report Type: 
  Country: None (occurrence: None)
  Receive Date: 20040217
  Receipt Date: 20040207
  Transmission Date: 20041129
  Serious: Yes (Hospitalization)
  Sender: FDA-Public Use
  Company Number: PHNU2004DE00834

PATIENT
  Age: 26 Year
  Sex: Female

DRUGS (4)
  1. SANDIMMUNE [Suspect]
     Indication: RENAL TRANSPLANT
     Dosage: 175 MG, QD
     Route: 048
  2. DECORTIN [Suspect]
     Indication: RENAL TRANSPLANT
     Dosage: 5 MG, QD
  3. METOPROLOL SUCCINATE [Concomitant]
  4. ALLOPURINOL [Concomitant]

REACTIONS (3)
  - LESION EXCISION [None]
  - SKIN INFLAMMATION [None]
  - SKIN LESION [None]
